FAERS Safety Report 9503023 (Version 2)
Quarter: 2013Q3

REPORT INFORMATION
  Report Type: Spontaneous
  Country: US (occurrence: None)
  Receive Date: 20130225
  Receipt Date: 20130909
  Transmission Date: 20140515
  Serious: Yes (Other)
  Sender: FDA-Public Use
  Company Number: 368573

PATIENT
  Age: 70 Year
  Sex: Female
  Weight: 72.1 kg

DRUGS (8)
  1. VICTOZA [Suspect]
     Indication: TYPE 2 DIABETES MELLITUS
     Dosage: 1.2 MG QD, SUBCUTANEOUS
     Route: 058
     Dates: start: 20120409, end: 20121212
  2. METFORMIN [Concomitant]
  3. LANTUS (INSULINE GLARGINE) [Concomitant]
  4. AMLODIPINE [Concomitant]
  5. METOPROLOL [Concomitant]
  6. LIPITOR (ATORVASTATIN CALCIUM) [Concomitant]
  7. RECLAST (ZOLEDRONIC ACID) [Concomitant]
  8. LISINOPRIL (LISINOPRIL) [Concomitant]

REACTIONS (1)
  - Pancreatitis [None]
